FAERS Safety Report 10142791 (Version 1)
Quarter: 2014Q2

REPORT INFORMATION
  Report Type: Spontaneous
  Country: GB (occurrence: None)
  Receive Date: 20140428
  Receipt Date: 20140428
  Transmission Date: 20141212
  Serious: Yes (Other)
  Sender: FDA-Public Use
  Company Number: AUR-APL-2014-04766

PATIENT
  Age: 64 Year
  Sex: Female

DRUGS (3)
  1. NAPROXEN (NAPROXEN) [Suspect]
     Indication: EPICONDYLITIS
     Route: 048
     Dates: start: 20140113, end: 20140123
  2. CO-CODAMOL (PANADEINE CO) [Concomitant]
  3. FENBID (IBUPROFEN) [Concomitant]

REACTIONS (1)
  - Wheezing [None]
